FAERS Safety Report 11839266 (Version 1)
Quarter: 2015Q4

REPORT INFORMATION
  Report Type: Spontaneous
  Country: US (occurrence: US)
  Receive Date: 20151216
  Receipt Date: 20151216
  Transmission Date: 20160305
  Serious: No
  Sender: FDA-Public Use
  Company Number: US-TEVA-559437USA

PATIENT
  Sex: Female

DRUGS (11)
  1. ALLOPURINOL. [Suspect]
     Active Substance: ALLOPURINOL
     Route: 065
  2. VITAMIN D [Concomitant]
     Active Substance: CHOLECALCIFEROL
  3. CALCITRIOL. [Suspect]
     Active Substance: CALCITRIOL
     Route: 065
  4. OXYBUTYNIN [Suspect]
     Active Substance: OXYBUTYNIN
     Route: 065
  5. SIMVASTATIN. [Suspect]
     Active Substance: SIMVASTATIN
     Route: 065
  6. MEGAVITAMIN [Concomitant]
  7. ASPIRIN. [Concomitant]
     Active Substance: ASPIRIN
  8. CHONDROITIN [Concomitant]
     Active Substance: CHONDROITIN
  9. LOSARTAN. [Suspect]
     Active Substance: LOSARTAN
     Route: 065
  10. CALCIUM [Concomitant]
     Active Substance: CALCIUM
  11. GLUCOSAMIN [Concomitant]

REACTIONS (2)
  - Constipation [Unknown]
  - Dry mouth [Unknown]

NARRATIVE: CASE EVENT DATE: 2015
